FAERS Safety Report 4478566-5 (Version None)
Quarter: 2004Q4

REPORT INFORMATION
  Report Type: 
  Country: None (occurrence: None)
  Receive Date: 20041019
  Receipt Date: 20040909
  Transmission Date: 20050328
  Serious: Yes (Hospitalization)
  Sender: FDA-Public Use
  Company Number: PHBS2004JP12051

PATIENT
  Age: 1 Year
  Sex: Male

DRUGS (1)
  1. ESIDRI [Suspect]
     Route: 048
     Dates: start: 20040908, end: 20040908

REACTIONS (6)
  - ACCIDENTAL OVERDOSE [None]
  - BLOOD PRESSURE SYSTOLIC DECREASED [None]
  - FLUSHING [None]
  - GENERALISED ERYTHEMA [None]
  - SOMNOLENCE [None]
  - TACHYCARDIA [None]
